FAERS Safety Report 18055380 (Version 6)
Quarter: 2021Q1

REPORT INFORMATION
  Report Type: Report from Study
  Country: US (occurrence: US)
  Receive Date: 20200722
  Receipt Date: 20210318
  Transmission Date: 20210419
  Serious: Yes (Other)
  Sender: FDA-Public Use
  Company Number: US-MALLINCKRODT-T201800237

PATIENT
  Age: 52 Year
  Sex: Female

DRUGS (16)
  1. REPOSITORY CORTICOTROPIN INJECTION [Suspect]
     Active Substance: CORTICOTROPIN
     Dosage: 40 UNITS/0.5 MILLILITER, TWICE A WEEK (MON/THUR)
     Route: 030
     Dates: start: 2017, end: 20180830
  2. REPOSITORY CORTICOTROPIN INJECTION [Suspect]
     Active Substance: CORTICOTROPIN
     Dosage: 40 UNITS/0.5 MILLILITER  THREE TIMES PER WEEK (MONDAY, WEDNESDAY, FRIDAY)
     Route: 030
     Dates: start: 20181015, end: 201810
  3. PREDNISONE. [Concomitant]
     Active Substance: PREDNISONE
     Indication: PRODUCT USED FOR UNKNOWN INDICATION
     Dosage: 20 MILLIGRAM, QD
     Route: 065
  4. REPOSITORY CORTICOTROPIN INJECTION [Suspect]
     Active Substance: CORTICOTROPIN
     Dosage: 80 UNITS/1 MILLILITER, TWICE A WEEK  (SUNDAY/THURSDAY)
     Route: 030
     Dates: start: 2017, end: 2017
  5. REPOSITORY CORTICOTROPIN INJECTION [Suspect]
     Active Substance: CORTICOTROPIN
     Dosage: 80 UNITS TWICE WEEKLY (WEDNESDAY, SUNDAY)
     Route: 058
     Dates: start: 20171213, end: 20180110
  6. REPOSITORY CORTICOTROPIN INJECTION [Suspect]
     Active Substance: CORTICOTROPIN
     Dosage: 40 UNITS/0.5 MILLILITER THREE TIMES A WEEK, MON, WED, FRI
     Route: 030
     Dates: start: 20200207, end: 2020
  7. METHOTREXATE. [Suspect]
     Active Substance: METHOTREXATE
     Indication: PRODUCT USED FOR UNKNOWN INDICATION
     Dosage: UNK
     Route: 065
  8. REPOSITORY CORTICOTROPIN INJECTION [Suspect]
     Active Substance: CORTICOTROPIN
     Dosage: 40 UNITS/0.5 MILLILITER  THREE TIMES A WEEK (MONDAY, WEDNESDAY, FRIDAY)
     Route: 030
  9. REPOSITORY CORTICOTROPIN INJECTION [Suspect]
     Active Substance: CORTICOTROPIN
     Dosage: 40 UNITS
     Route: 065
     Dates: start: 2020, end: 2020
  10. REPOSITORY CORTICOTROPIN INJECTION [Suspect]
     Active Substance: CORTICOTROPIN
     Dosage: 40 UNITS/0.5 MILLILITER, TWICE A WEEK (SUN/THUR)
     Route: 030
     Dates: start: 2017, end: 2017
  11. HUMIRA [Concomitant]
     Active Substance: ADALIMUMAB
     Indication: PRODUCT USED FOR UNKNOWN INDICATION
     Dosage: UNK
     Route: 065
  12. REPOSITORY CORTICOTROPIN INJECTION [Suspect]
     Active Substance: CORTICOTROPIN
     Dosage: 40 UNITS/0.5 MILLILITER, TWICE A WEEK SUNDAY/THURSDAY
     Route: 030
     Dates: start: 2017, end: 2017
  13. REPOSITORY CORTICOTROPIN INJECTION [Suspect]
     Active Substance: CORTICOTROPIN
     Dosage: 40 UNITS/0.5 MILLILITER THREE TIMES PER WEEK (MONDAY, WEDNESDAY, FRIDAY)
     Route: 030
     Dates: start: 2018, end: 2018
  14. REPOSITORY CORTICOTROPIN INJECTION [Suspect]
     Active Substance: CORTICOTROPIN
     Indication: UVEITIS
     Dosage: 80 UNITS/1 MILLILITER, TWICE A WEEK
     Route: 030
     Dates: start: 20171210, end: 201712
  15. REPOSITORY CORTICOTROPIN INJECTION [Suspect]
     Active Substance: CORTICOTROPIN
     Dosage: 40 UNITS /0.5 MILLILITER (THREE TIMES A WEEK) , OTHER (MON, WED, FRI)
     Route: 030
     Dates: start: 20171210, end: 201712
  16. REPOSITORY CORTICOTROPIN INJECTION [Suspect]
     Active Substance: CORTICOTROPIN
     Dosage: 40 UNITS THREE TIMES PER WEEK
     Route: 058
     Dates: start: 2020, end: 2020

REACTIONS (26)
  - Abdominal discomfort [Not Recovered/Not Resolved]
  - Blood cholesterol increased [Not Recovered/Not Resolved]
  - Visual impairment [Not Recovered/Not Resolved]
  - Weight increased [Not Recovered/Not Resolved]
  - Flatulence [Not Recovered/Not Resolved]
  - Dizziness [Recovering/Resolving]
  - Confusional state [Unknown]
  - Ankle fracture [Recovering/Resolving]
  - Tremor [Recovering/Resolving]
  - Eye inflammation [Not Recovered/Not Resolved]
  - Clumsiness [Unknown]
  - Headache [Recovering/Resolving]
  - Eye operation [Unknown]
  - Diabetes mellitus [Not Recovered/Not Resolved]
  - Fluid retention [Recovering/Resolving]
  - Intraocular pressure test abnormal [Recovering/Resolving]
  - Feeling jittery [Recovering/Resolving]
  - Drug ineffective [Not Recovered/Not Resolved]
  - Vitreous floaters [Not Recovered/Not Resolved]
  - Hypersensitivity [Not Recovered/Not Resolved]
  - Circumstance or information capable of leading to medication error [Not Recovered/Not Resolved]
  - Product outer packaging issue [Not Recovered/Not Resolved]
  - Fall [Unknown]
  - Ocular procedural complication [Unknown]
  - Eye swelling [Not Recovered/Not Resolved]
  - Product dose omission issue [Not Recovered/Not Resolved]

NARRATIVE: CASE EVENT DATE: 20180111
